FAERS Safety Report 9942364 (Version 4)
Quarter: 2014Q1

REPORT INFORMATION
  Report Type: Spontaneous
  Country: IT (occurrence: IT)
  Receive Date: 20140303
  Receipt Date: 20140313
  Transmission Date: 20141002
  Serious: Yes (Other)
  Sender: FDA-Public Use
  Company Number: IT-PFIZER INC-2014023918

PATIENT
  Age: 46 Year
  Sex: Male

DRUGS (2)
  1. ALPRAZOLAM [Suspect]
     Dosage: 5 MG, TOTAL
     Route: 048
     Dates: start: 20131104, end: 20131104
  2. CALCIUM ^SANDOZ^ [Concomitant]
     Dosage: UNK
     Route: 048

REACTIONS (3)
  - Toxicity to various agents [Recovering/Resolving]
  - Somnolence [Recovering/Resolving]
  - Drug abuse [Recovering/Resolving]
